FAERS Safety Report 6454732-4 (Version None)
Quarter: 2009Q4

REPORT INFORMATION
  Report Type: 
  Country: None (occurrence: None)
  Receive Date: 20091118
  Receipt Date: 20091103
  Transmission Date: 20100525
  Serious: Yes (Hospitalization)
  Sender: FDA-Public Use
  Company Number: CIR-DE-265-09

PATIENT
  Age: 54 Year
  Sex: Male

DRUGS (7)
  1. CIRCADIN (MELATONIN) (MELATONIN) [Suspect]
     Indication: SLEEP DISORDER
     Dosage: 2 MG, ORAL
     Route: 048
     Dates: start: 20090812, end: 20090818
  2. CIPRAMIL (CITALOPRAM) [Suspect]
     Dosage: 20 MG, ORAL
     Route: 048
     Dates: start: 20090811, end: 20090820
  3. METHADON (METHADONE HYDROCHLORIDE) [Concomitant]
  4. BELOC ZOC (METOPROLOL SUCCINATE) [Concomitant]
  5. RAMIPRIL [Concomitant]
  6. FENOFIBRATE [Concomitant]
  7. IBUPROFEN [Concomitant]

REACTIONS (4)
  - ALANINE AMINOTRANSFERASE INCREASED [None]
  - ASPARTATE AMINOTRANSFERASE INCREASED [None]
  - C-REACTIVE PROTEIN INCREASED [None]
  - GAMMA-GLUTAMYLTRANSFERASE INCREASED [None]
